FAERS Safety Report 6667460-7 (Version None)
Quarter: 2010Q2

REPORT INFORMATION
  Report Type: 
  Country: None (occurrence: None)
  Receive Date: 20100405
  Receipt Date: 20100329
  Transmission Date: 20101027
  Serious: Yes (Hospitalization)
  Sender: FDA-Public Use
  Company Number: NL-ROCHE-693851

PATIENT
  Sex: Male

DRUGS (2)
  1. BEVACIZUMAB [Suspect]
     Dosage: DATE OF LAST CYCLE: MAY 2009
     Route: 042
     Dates: start: 20090203
  2. CAPECITABINE [Suspect]
     Dosage: DATE OF LAST CYCLE: 16 FEBRUARY 2010
     Route: 048
     Dates: start: 20090203

REACTIONS (2)
  - CONSTIPATION [None]
  - GASTROINTESTINAL STOMA COMPLICATION [None]
